FAERS Safety Report 8035487-9 (Version None)
Quarter: 2012Q1

REPORT INFORMATION
  Report Type: 
  Country: None (occurrence: None)
  Receive Date: 20120111
  Receipt Date: 20120104
  Transmission Date: 20120608
  Serious: Yes (Other)
  Sender: FDA-Public Use
  Company Number: FR-JNJFOC-20120101965

PATIENT
  Sex: Female

DRUGS (6)
  1. XARELTO [Suspect]
     Indication: THROMBOSIS PROPHYLAXIS
     Route: 048
     Dates: start: 20111121, end: 20111122
  2. CANDESARTAN CILEXETIL AND HYDROCHLOROTHIAZIDE [Concomitant]
  3. MORPHINE SULFATE [Concomitant]
     Route: 048
     Dates: start: 20111121, end: 20111124
  4. RABEPRAZOLE SODIUM [Concomitant]
     Route: 048
     Dates: start: 20111121, end: 20111124
  5. SIMVASTATIN [Concomitant]
     Dates: start: 20111123
  6. ACETAMINOPHEN [Concomitant]
     Route: 048
     Dates: start: 20111121, end: 20111121

REACTIONS (1)
  - DEEP VEIN THROMBOSIS [None]
